FAERS Safety Report 24718775 (Version 2)
Quarter: 2024Q4

REPORT INFORMATION
  Report Type: Spontaneous
  Country: US (occurrence: US)
  Receive Date: 20241210
  Receipt Date: 20241223
  Transmission Date: 20250114
  Serious: Yes (Disabling)
  Sender: MYLAN
  Company Number: US-MYLANLABS-2024M1110053

PATIENT
  Age: 50 Year
  Sex: Male
  Weight: 88.45 kg

DRUGS (6)
  1. CITALOPRAM [Suspect]
     Active Substance: CITALOPRAM
     Indication: Anxiety
     Dosage: 20 MILLIGRAM, QD (ONCE A DAY)
     Route: 048
     Dates: start: 202211
  2. CITALOPRAM [Suspect]
     Active Substance: CITALOPRAM
     Dosage: 20 MILLIGRAM, Q2D (EVERY OTHER DAY, FOR A WEEK)
     Route: 048
     Dates: start: 20241001
  3. CITALOPRAM [Suspect]
     Active Substance: CITALOPRAM
     Dosage: 10 MILLIGRAM, Q2D (EVERY OTHER DAY)
     Route: 048
     Dates: start: 20241007
  4. CITALOPRAM [Suspect]
     Active Substance: CITALOPRAM
     Dosage: 5 MILLIGRAM, Q2D (TWO 5MG EVERY OTHER DAY)
     Route: 048
     Dates: start: 20241014
  5. CITALOPRAM [Suspect]
     Active Substance: CITALOPRAM
     Dosage: 2 MILLIGRAM, Q2D (TWO 2MG EVERY OTHER DAY)
     Route: 048
     Dates: end: 20241021
  6. FINASTERIDE [Concomitant]
     Active Substance: FINASTERIDE
     Indication: Hair disorder
     Dosage: 1 MILLIGRAM, QD (ONCE A DAY)
     Route: 048

REACTIONS (17)
  - Balance disorder [Recovered/Resolved with Sequelae]
  - Loss of personal independence in daily activities [Recovered/Resolved with Sequelae]
  - Illness [Not Recovered/Not Resolved]
  - Sensory disturbance [Not Recovered/Not Resolved]
  - Influenza like illness [Recovered/Resolved with Sequelae]
  - Brain fog [Not Recovered/Not Resolved]
  - Thinking abnormal [Not Recovered/Not Resolved]
  - Cognitive disorder [Not Recovered/Not Resolved]
  - Dyspnoea [Not Recovered/Not Resolved]
  - Malaise [Not Recovered/Not Resolved]
  - Fatigue [Not Recovered/Not Resolved]
  - Nausea [Not Recovered/Not Resolved]
  - Insomnia [Not Recovered/Not Resolved]
  - Tinnitus [Not Recovered/Not Resolved]
  - Headache [Not Recovered/Not Resolved]
  - Treatment noncompliance [Unknown]
  - Intentional product misuse [Unknown]

NARRATIVE: CASE EVENT DATE: 20230601
